FAERS Safety Report 7408932-7 (Version None)
Quarter: 2011Q2

REPORT INFORMATION
  Report Type: 
  Country: None (occurrence: None)
  Receive Date: 20110407
  Receipt Date: 20110407
  Transmission Date: 20111010
  Serious: Yes (Hospitalization)
  Sender: FDA-Public Use
  Company Number: None

PATIENT
  Age: 13 Year
  Sex: Female

DRUGS (8)
  1. LANSOPRAZOLE [Concomitant]
  2. MIRALAX [Concomitant]
  3. CETIRIZINE HCL [Concomitant]
  4. GAMMAGARD [Suspect]
     Indication: MITOCHONDRIAL ENZYME DEFICIENCY
     Dosage: 20MG G Q MONTH IV
     Route: 042
     Dates: start: 20110301
  5. GAMMAGARD [Suspect]
     Indication: IMMUNE SYSTEM DISORDER
     Dosage: 20MG G Q MONTH IV
     Route: 042
     Dates: start: 20110301
  6. BUDESONIDE [Concomitant]
  7. RIBOFLAVIN TAB [Concomitant]
  8. LEVOCORTINIRE [Concomitant]

REACTIONS (4)
  - MUSCULOSKELETAL STIFFNESS [None]
  - VOMITING [None]
  - BACK PAIN [None]
  - HEADACHE [None]
